FAERS Safety Report 7621135-6 (Version None)
Quarter: 2011Q3

REPORT INFORMATION
  Report Type: 
  Country: None (occurrence: None)
  Receive Date: 20110719
  Receipt Date: 20110715
  Transmission Date: 20111222
  Serious: Yes (Hospitalization)
  Sender: FDA-Public Use
  Company Number: US-B.I. PHARMACEUTICALS,INC./RIDGEFIELD-2011-BP-17821BP

PATIENT
  Sex: Male

DRUGS (7)
  1. METFORMIN HCL [Concomitant]
     Indication: DIABETES MELLITUS
  2. KLOR-CON [Concomitant]
     Indication: CARDIAC DISORDER
  3. PRADAXA [Suspect]
     Indication: ATRIAL FIBRILLATION
     Dosage: 150 MG
     Route: 048
     Dates: start: 20110422
  4. LASIX [Concomitant]
     Indication: CARDIAC DISORDER
  5. AMIODARONE HCL [Concomitant]
     Indication: CARDIAC DISORDER
  6. METOPROLOL TARTRATE [Concomitant]
     Indication: CARDIAC DISORDER
  7. SIMVASTATIN [Concomitant]
     Indication: BLOOD CHOLESTEROL INCREASED

REACTIONS (1)
  - RECTAL HAEMORRHAGE [None]
